FAERS Safety Report 15360146 (Version 3)
Quarter: 2018Q4

REPORT INFORMATION
  Report Type: Report from Study
  Country: US (occurrence: US)
  Receive Date: 20180907
  Receipt Date: 20181031
  Transmission Date: 20190204
  Serious: Yes (Hospitalization, Other)
  Sender: FDA-Public Use
  Company Number: US-TESARO, INC-US-2018TSO03881

PATIENT
  Age: 68 Year
  Weight: 60.32 kg

DRUGS (4)
  1. ZEJULA [Suspect]
     Active Substance: NIRAPARIB
     Indication: OVARIAN CANCER
     Dosage: 100 MG, QD
     Route: 048
     Dates: start: 20180723
  2. LYNPARZA [Suspect]
     Active Substance: OLAPARIB
     Indication: PRODUCT USED FOR UNKNOWN INDICATION
     Dosage: 200 MG, QD
     Dates: start: 20180723, end: 20181003
  3. ZEJULA [Suspect]
     Active Substance: NIRAPARIB
     Dosage: 3 DF, QD
     Route: 048
  4. ZEJULA [Suspect]
     Active Substance: NIRAPARIB
     Dosage: 200 MG, QD
     Route: 048

REACTIONS (12)
  - Oesophageal motility disorder [Not Recovered/Not Resolved]
  - Functional gastrointestinal disorder [Not Recovered/Not Resolved]
  - Dysphagia [Not Recovered/Not Resolved]
  - Insomnia [Not Recovered/Not Resolved]
  - Weight decreased [Unknown]
  - Decreased appetite [Unknown]
  - Nausea [Not Recovered/Not Resolved]
  - Abdominal pain lower [Not Recovered/Not Resolved]
  - Abdominal pain upper [Not Recovered/Not Resolved]
  - Feeling abnormal [Not Recovered/Not Resolved]
  - Dyspnoea [Not Recovered/Not Resolved]
  - Intentional underdose [Recovered/Resolved]

NARRATIVE: CASE EVENT DATE: 201807
